FAERS Safety Report 4341744-X (Version None)
Quarter: 2004Q2

REPORT INFORMATION
  Report Type: 
  Country: None (occurrence: None)
  Receive Date: 20040420
  Receipt Date: 20040413
  Transmission Date: 20050107
  Serious: Yes (Hospitalization, Disabling)
  Sender: FDA-Public Use
  Company Number: JP-MERCK-0404USA01505

PATIENT
  Age: 68 Year
  Sex: Male

DRUGS (7)
  1. DIPYRIDAMOLE [Suspect]
     Indication: NEPHRITIS
     Route: 048
     Dates: start: 20040228, end: 20040314
  2. DIPYRIDAMOLE [Suspect]
     Route: 048
     Dates: start: 20040315, end: 20040317
  3. VASOTEC [Concomitant]
     Route: 065
  4. LANSOPRAZOLE [Concomitant]
     Route: 065
  5. COZAAR [Suspect]
     Indication: NEPHRITIS
     Route: 048
     Dates: start: 20040228, end: 20040317
  6. REBAMIPIDE [Concomitant]
     Route: 065
  7. TICLOPIDINE HYDROCHLORIDE [Concomitant]
     Route: 065
     Dates: start: 20040104, end: 20040227

REACTIONS (7)
  - EPISTAXIS [None]
  - GASTROINTESTINAL HAEMORRHAGE [None]
  - HAEMATOCRIT DECREASED [None]
  - HAEMOGLOBIN DECREASED [None]
  - PLATELET COUNT ABNORMAL [None]
  - PLATELET COUNT DECREASED [None]
  - RED BLOOD CELL COUNT ABNORMAL [None]
